FAERS Safety Report 4901275-2 (Version None)
Quarter: 2006Q1

REPORT INFORMATION
  Report Type: 
  Country: None (occurrence: None)
  Receive Date: 20060206
  Receipt Date: 20060127
  Transmission Date: 20060701
  Serious: Yes (Hospitalization)
  Sender: FDA-Public Use
  Company Number: FR-AVENTIS-200610355FR

PATIENT
  Age: 61 Year
  Sex: Female

DRUGS (3)
  1. LOVENOX [Suspect]
     Route: 058
     Dates: start: 20050801
  2. PLAVIX [Suspect]
     Indication: ANGINA PECTORIS
     Dates: start: 20050801
  3. KARDEGIC [Concomitant]
     Indication: ANGINA PECTORIS

REACTIONS (1)
  - MYOCARDIAL INFARCTION [None]
